FAERS Safety Report 4408572-8 (Version None)
Quarter: 2004Q3

REPORT INFORMATION
  Report Type: 
  Country: None (occurrence: None)
  Receive Date: 20040726
  Receipt Date: 20040726
  Transmission Date: 20050211
  Serious: Yes (Hospitalization)
  Sender: FDA-Public Use
  Company Number: None

PATIENT
  Age: 60 Year
  Sex: Female
  Weight: 114.3065 kg

DRUGS (10)
  1. TEQUIN [Suspect]
     Indication: SKIN INFECTION
     Dosage: 400 MG PO ONCE DAILY
     Route: 048
     Dates: start: 20040713, end: 20040714
  2. PREVACID [Concomitant]
  3. PAXIL [Concomitant]
  4. PLAVIX [Concomitant]
  5. ALTACE [Concomitant]
  6. COREG [Concomitant]
  7. TRICOR [Concomitant]
  8. ASPIRIN [Concomitant]
  9. AVANDIA [Concomitant]
  10. GLYBURIDE [Concomitant]

REACTIONS (2)
  - BLOOD GLUCOSE DECREASED [None]
  - CHILLS [None]
